FAERS Safety Report 12184314 (Version 2)
Quarter: 2016Q1

REPORT INFORMATION
  Report Type: Report from Study
  Country: US (occurrence: US)
  Receive Date: 20160316
  Receipt Date: 20160317
  Transmission Date: 20160526
  Serious: Yes (Hospitalization)
  Sender: FDA-Public Use
  Company Number: US-ABBVIE-16K-163-1553645-00

PATIENT
  Age: 64 Year
  Sex: Female

DRUGS (4)
  1. ADVAIR HFA [Concomitant]
     Active Substance: FLUTICASONE PROPIONATE\SALMETEROL XINAFOATE
     Indication: CHRONIC OBSTRUCTIVE PULMONARY DISEASE
  2. SERUM TEARS [Concomitant]
     Indication: DRY EYE
  3. HUMIRA [Suspect]
     Active Substance: ADALIMUMAB
     Indication: RHEUMATOID ARTHRITIS
     Route: 058
     Dates: end: 20160221
  4. MELOXICAM. [Concomitant]
     Active Substance: MELOXICAM
     Indication: RHEUMATOID ARTHRITIS

REACTIONS (16)
  - Dyspnoea [Recovered/Resolved]
  - Injection site warmth [Unknown]
  - Bronchitis [Recovering/Resolving]
  - Injection site swelling [Recovering/Resolving]
  - Cough [Recovered/Resolved]
  - Hypersensitivity [Recovered/Resolved]
  - Influenza like illness [Recovered/Resolved]
  - Injection site erythema [Unknown]
  - Cough [Recovering/Resolving]
  - Dyspnoea [Recovering/Resolving]
  - Injection site swelling [Unknown]
  - Cough [Recovered/Resolved]
  - Influenza like illness [Recovered/Resolved]
  - Injection site erythema [Recovering/Resolving]
  - Viral infection [Recovered/Resolved]
  - Injection site rash [Recovering/Resolving]

NARRATIVE: CASE EVENT DATE: 201511
